FAERS Safety Report 5368194-1 (Version None)
Quarter: 2007Q2

REPORT INFORMATION
  Report Type: 
  Country: None (occurrence: None)
  Receive Date: 20070625
  Receipt Date: 20070615
  Transmission Date: 20071010
  Serious: Yes (Hospitalization)
  Sender: FDA-Public Use
  Company Number: PHRM2007FR01319

PATIENT
  Age: 94 Year
  Sex: Female

DRUGS (9)
  1. VOLTAREN [Suspect]
     Dosage: 150 MG/DAY
     Route: 048
     Dates: start: 20070315
  2. OMEPRAZOLE [Concomitant]
     Dosage: 20 MG/DAY
     Route: 048
     Dates: start: 20070315
  3. VASTAREL [Concomitant]
     Dosage: 20 MG, BID
  4. LORAZEPAM [Concomitant]
     Dosage: 2.5 MG, QD
  5. FUROSEMIDE [Concomitant]
     Dosage: 20 MG/DAY
  6. CELECTOL [Concomitant]
     Dosage: 1 DF, QD
     Route: 048
  7. PROZAC [Concomitant]
     Dosage: 1 DF, QD
     Route: 048
  8. EFFERALGAN CODEINE [Concomitant]
     Dosage: 6 TAB/DAY
     Route: 048
  9. DELURSAN [Concomitant]
     Dosage: 500 MG/DAY
     Route: 048

REACTIONS (13)
  - BACK PAIN [None]
  - BLOOD ALKALINE PHOSPHATASE INCREASED [None]
  - BLOOD LACTATE DEHYDROGENASE INCREASED [None]
  - C-REACTIVE PROTEIN INCREASED [None]
  - DISORIENTATION [None]
  - DYSPHAGIA [None]
  - HAEMATEMESIS [None]
  - HAEMOGLOBIN DECREASED [None]
  - HYPOTENSION [None]
  - OESOPHAGEAL VARICEAL LIGATION [None]
  - OESOPHAGEAL VARICES HAEMORRHAGE [None]
  - OESOPHAGOSCOPY [None]
  - PALLOR [None]
